FAERS Safety Report 12229638 (Version 1)
Quarter: 2016Q1

REPORT INFORMATION
  Report Type: Spontaneous
  Country: US (occurrence: None)
  Receive Date: 20160331
  Receipt Date: 20160331
  Transmission Date: 20160526
  Serious: Yes (Hospitalization)
  Sender: FDA-Public Use
  Company Number: None

PATIENT
  Age: 69 Year
  Sex: Female
  Weight: 83.92 kg

DRUGS (11)
  1. CLARITIN-D 12 HOUR [Concomitant]
     Active Substance: LORATADINE\PSEUDOEPHEDRINE SULFATE
  2. VITAMIN B12 [Concomitant]
     Active Substance: CYANOCOBALAMIN
  3. COQ10 [Concomitant]
     Active Substance: UBIDECARENONE
  4. MAGNESIUM [Concomitant]
     Active Substance: MAGNESIUM
  5. JANTOVEN [Suspect]
     Active Substance: WARFARIN SODIUM
     Indication: THROMBOSIS
     Route: 048
     Dates: start: 20160128, end: 20160324
  6. SINGULAIR [Concomitant]
     Active Substance: MONTELUKAST SODIUM
  7. MULTIPLE VITAMIN [Concomitant]
     Active Substance: VITAMINS
  8. NASONEX [Concomitant]
     Active Substance: MOMETASONE FUROATE
  9. VITAMIN D3 [Concomitant]
     Active Substance: CHOLECALCIFEROL
  10. WARFARIN [Concomitant]
     Active Substance: WARFARIN
  11. CALCIUM [Concomitant]
     Active Substance: CALCIUM

REACTIONS (3)
  - Epistaxis [None]
  - Product substitution issue [None]
  - Drug intolerance [None]

NARRATIVE: CASE EVENT DATE: 20160313
